FAERS Safety Report 17253498 (Version 1)
Quarter: 2020Q1

REPORT INFORMATION
  Report Type: Report from Study
  Country: US (occurrence: US)
  Receive Date: 20200109
  Receipt Date: 20200109
  Transmission Date: 20200409
  Serious: Yes (Other)
  Sender: FDA-Public Use
  Company Number: NVSC2020US003862

PATIENT
  Age: 34 Year
  Sex: Female

DRUGS (1)
  1. ENTRESTO [Suspect]
     Active Substance: SACUBITRIL\VALSARTAN
     Indication: CARDIAC DISORDER
     Dosage: 1 DF (49MG/51 MG), BID
     Route: 048
     Dates: start: 201912

REACTIONS (3)
  - Fatigue [Recovering/Resolving]
  - Product use in unapproved indication [Unknown]
  - Infected cyst [Unknown]

NARRATIVE: CASE EVENT DATE: 201912
